FAERS Safety Report 7305472-0 (Version None)
Quarter: 2011Q1

REPORT INFORMATION
  Report Type: 
  Country: None (occurrence: None)
  Receive Date: 20110222
  Receipt Date: 20110214
  Transmission Date: 20110831
  Serious: Yes (Other)
  Sender: FDA-Public Use
  Company Number: US-SANOFI-AVENTIS-2011SA010259

PATIENT
  Age: 58 Year
  Sex: Female

DRUGS (4)
  1. SOLOSTAR [Suspect]
     Indication: TYPE 2 DIABETES MELLITUS
     Dates: start: 20090101
  2. HUMALOG [Concomitant]
     Dates: start: 20101201
  3. LANTUS [Suspect]
     Indication: TYPE 2 DIABETES MELLITUS
     Dosage: DOSE:70 UNIT(S)
     Route: 058
     Dates: start: 20100101
  4. LANTUS [Suspect]
     Dosage: DOSE:45 UNIT(S)
     Route: 058
     Dates: start: 20090101, end: 20100101

REACTIONS (7)
  - INJECTION SITE HAEMORRHAGE [None]
  - BLOOD GLUCOSE DECREASED [None]
  - BLOOD GLUCOSE INCREASED [None]
  - FEELING ABNORMAL [None]
  - NERVOUSNESS [None]
  - CARDIAC OPERATION [None]
  - HYPERHIDROSIS [None]
